FAERS Safety Report 16841884 (Version 2)
Quarter: 2019Q4

REPORT INFORMATION
  Report Type: Spontaneous
  Country: IL (occurrence: UA)
  Receive Date: 20190923
  Receipt Date: 20191028
  Transmission Date: 20200122
  Serious: Yes (Death, Other)
  Sender: FDA-Public Use
  Company Number: IL-TAKEDA-2019TUS053532

PATIENT
  Age: 61 Year
  Sex: Female

DRUGS (1)
  1. ICLUSIG [Suspect]
     Active Substance: PONATINIB
     Indication: BLAST CRISIS IN MYELOGENOUS LEUKAEMIA
     Dosage: UNK
     Route: 048
     Dates: start: 20150129, end: 20190917

REACTIONS (1)
  - Blast crisis in myelogenous leukaemia [Fatal]
